FAERS Safety Report 5152502-0 (Version None)
Quarter: 2006Q4

REPORT INFORMATION
  Report Type: 
  Country: None (occurrence: None)
  Receive Date: 20061109
  Receipt Date: 20061025
  Transmission Date: 20070319
  Serious: Yes (Disabling)
  Sender: FDA-Public Use
  Company Number: 2006IT003401

PATIENT
  Age: 69 Year
  Sex: Male

DRUGS (7)
  1. ALOXI [Suspect]
     Indication: PROPHYLAXIS OF NAUSEA AND VOMITING
     Dosage: 0.25 MG, SINGLE, INTRAVENOUS
     Route: 042
     Dates: start: 20060919, end: 20060919
  2. CISPLATIN [Suspect]
     Indication: LUNG ADENOCARCINOMA METASTATIC
     Dosage: 140 MG, SINGLE, INTRAVENOUS
     Route: 042
     Dates: start: 20060919, end: 20060919
  3. NAVELBINE [Suspect]
     Indication: LUNG ADENOCARCINOMA METASTATIC
     Dosage: 45 MG, SINGLE, INTRAVENOUS; SEE IMAGE
     Route: 042
     Dates: start: 20060919, end: 20060919
  4. NAVELBINE [Suspect]
     Indication: LUNG ADENOCARCINOMA METASTATIC
     Dosage: 45 MG, SINGLE, INTRAVENOUS; SEE IMAGE
     Route: 042
     Dates: start: 20060926, end: 20060926
  5. FUROSEMIDE [Suspect]
     Indication: DIURETIC EFFECT
     Dosage: 20 MG, SINGLE, INTRAVENOUS
     Route: 042
     Dates: start: 20060919, end: 20060919
  6. SOLDESAM      (DEXAMETHASONE SODIUM PHOSPHATE) [Concomitant]
  7. ZOFRAN /00955301/ (ONDANSETRON) [Concomitant]

REACTIONS (2)
  - HYPOACUSIS [None]
  - OTOTOXICITY [None]
